FAERS Safety Report 17856830 (Version 2)
Quarter: 2020Q2

REPORT INFORMATION
  Report Type: Spontaneous
  Country: CN (occurrence: CN)
  Receive Date: 20200603
  Receipt Date: 20200619
  Transmission Date: 20200714
  Serious: No
  Sender: FDA-Public Use
  Company Number: CN-BAUSCH-BL-2020-016063

PATIENT
  Age: 14 Year
  Sex: Female

DRUGS (2)
  1. BRONUCK OPHTHALMIC SOLUTION 0.1% [Suspect]
     Active Substance: BROMFENAC SODIUM
     Indication: PREMEDICATION
     Dosage: 1 GTT IN BOTH EYES
     Route: 047
     Dates: start: 20200507, end: 20200507
  2. TOBREX [Concomitant]
     Active Substance: TOBRAMYCIN
     Indication: PREMEDICATION
     Dosage: IN BOTH EYES
     Route: 065
     Dates: start: 20200507, end: 20200507

REACTIONS (3)
  - Conjunctival oedema [Recovering/Resolving]
  - Conjunctival hyperaemia [Recovering/Resolving]
  - Eyelid oedema [Recovering/Resolving]

NARRATIVE: CASE EVENT DATE: 20200507
